FAERS Safety Report 5812869-4 (Version None)
Quarter: 2008Q3

REPORT INFORMATION
  Report Type: 
  Country: None (occurrence: None)
  Receive Date: 20080714
  Receipt Date: 20080703
  Transmission Date: 20090109
  Serious: No
  Sender: FDA-Public Use
  Company Number: DSU-2008-00581

PATIENT
  Age: 72 Year
  Sex: Male
  Weight: 92.9874 kg

DRUGS (3)
  1. WELCHOL [Suspect]
     Indication: HYPERCHOLESTEROLAEMIA
     Dosage: 2500 MG (1250 MG, BID), PER ORAL
     Route: 048
     Dates: start: 20080331
  2. PRINIVIL (LISINOPRIL) (5 MILLIGRAM, TABLET) (LISINOPRIL) [Concomitant]
  3. METAMUCIL (PLANTAGO OVATA) (PLANTAGO OVATA) [Concomitant]

REACTIONS (5)
  - AMNESIA [None]
  - MYALGIA [None]
  - PAIN IN EXTREMITY [None]
  - RETCHING [None]
  - WRONG TECHNIQUE IN DRUG USAGE PROCESS [None]
